FAERS Safety Report 19941957 (Version 1)
Quarter: 2021Q4

REPORT INFORMATION
  Report Type: Spontaneous
  Country: US (occurrence: US)
  Receive Date: 20211011
  Receipt Date: 20211011
  Transmission Date: 20220303
  Serious: Yes (Disabling, Other)
  Sender: FDA-Public Use
  Company Number: None

PATIENT
  Age: 45 Year
  Sex: Male
  Weight: 67.05 kg

DRUGS (2)
  1. BIKTARVY [Suspect]
     Active Substance: BICTEGRAVIR SODIUM\EMTRICITABINE\TENOFOVIR ALAFENAMIDE FUMARATE
     Indication: HIV infection
     Dosage: ?          QUANTITY:1 TABLET(S);
     Route: 048
     Dates: start: 20210820, end: 20211010
  2. ONCE A DAY VITAMIN FOR MEN [Concomitant]

REACTIONS (4)
  - Abdominal pain [None]
  - Pain [None]
  - Irritable bowel syndrome [None]
  - Pancreatitis [None]

NARRATIVE: CASE EVENT DATE: 20210905
